FAERS Safety Report 25070942 (Version 2)
Quarter: 2025Q3

REPORT INFORMATION
  Report Type: Report from Study
  Country: US (occurrence: US)
  Receive Date: 20250312
  Receipt Date: 20250803
  Transmission Date: 20251020
  Serious: Yes (Life-Threatening, Hospitalization, Other)
  Sender: ALEXION PHARMACEUTICALS
  Company Number: US-AstraZeneca-CH-00818023A

PATIENT
  Age: 60 Year
  Sex: Male

DRUGS (12)
  1. DAPAGLIFLOZIN [Suspect]
     Active Substance: DAPAGLIFLOZIN
     Dosage: 10 MILLIGRAM, QD
  2. BUDESONIDE [Concomitant]
     Active Substance: BUDESONIDE
  3. ARFORMOTEROL [Concomitant]
     Active Substance: ARFORMOTEROL
  4. ALBUTEROL\IPRATROPIUM [Concomitant]
     Active Substance: ALBUTEROL\IPRATROPIUM
  5. AMIODARONE [Concomitant]
     Active Substance: AMIODARONE
     Dosage: 200 MILLIGRAM, QD
  6. APIXABAN [Concomitant]
     Active Substance: APIXABAN
     Dosage: 5 MILLIGRAM, BID
  7. ASPIRIN [Concomitant]
     Active Substance: ASPIRIN
     Dosage: 81 MILLIGRAM, QD
  8. ATORVASTATIN [Concomitant]
     Active Substance: ATORVASTATIN
  9. CARVEDILOL [Concomitant]
     Active Substance: CARVEDILOL
     Dosage: 6.25 MILLIGRAM, BID
  10. FUROSEMIDE [Concomitant]
     Active Substance: FUROSEMIDE
     Dosage: 40 MILLIGRAM, QD
  11. LOSARTAN [Concomitant]
     Active Substance: LOSARTAN
  12. SPIRONOLACTONE [Concomitant]
     Active Substance: SPIRONOLACTONE
     Dosage: 25 MILLIGRAM, QD

REACTIONS (17)
  - Acute respiratory failure [Unknown]
  - Cardiac failure congestive [Unknown]
  - Atrial fibrillation [Unknown]
  - Ventricular tachycardia [Unknown]
  - Defect conduction intraventricular [Unknown]
  - Bundle branch block [Unknown]
  - Chronic obstructive pulmonary disease [Unknown]
  - Influenza [Unknown]
  - Arteriosclerosis coronary artery [Unknown]
  - Weight increased [Unknown]
  - Fatigue [Unknown]
  - Dyspnoea exertional [Unknown]
  - Cough [Unknown]
  - Muscular weakness [Unknown]
  - Increased tendency to bruise [Unknown]
  - Bleeding time prolonged [Unknown]
  - Inability to afford medication [Unknown]
